FAERS Safety Report 9740098 (Version 1)
Quarter: 2013Q4

REPORT INFORMATION
  Report Type: Spontaneous
  Country: RU (occurrence: RU)
  Receive Date: 20131209
  Receipt Date: 20131209
  Transmission Date: 20140711
  Serious: Yes (Other)
  Sender: FDA-Public Use
  Company Number: RU-VIIV HEALTHCARE LIMITED-B0951265A

PATIENT
  Age: 30 Year
  Sex: Female

DRUGS (2)
  1. KIVEXA [Suspect]
     Indication: HIV INFECTION
     Dosage: 900MG PER DAY
     Route: 065
     Dates: start: 20131121, end: 20131128
  2. KALETRA [Concomitant]
     Indication: HIV INFECTION
     Dosage: 250MG PER DAY
     Route: 065
     Dates: start: 20131121

REACTIONS (5)
  - Dyspnoea [Recovered/Resolved]
  - Visual impairment [Recovered/Resolved]
  - Pyrexia [Recovered/Resolved]
  - Rash [Recovered/Resolved]
  - Hypersensitivity [Unknown]
